FAERS Safety Report 8479811-1 (Version None)
Quarter: 2012Q2

REPORT INFORMATION
  Report Type: 
  Country: None (occurrence: None)
  Receive Date: 20120629
  Receipt Date: 20120627
  Transmission Date: 20120825
  Serious: Yes (Hospitalization)
  Sender: FDA-Public Use
  Company Number: US-ELI_LILLY_AND_COMPANY-US201205002514

PATIENT
  Sex: Male
  Weight: 117.91 kg

DRUGS (7)
  1. ASPIRIN [Concomitant]
  2. ZETIA [Concomitant]
  3. FISH OIL [Concomitant]
  4. EFFIENT [Suspect]
     Dosage: UNK
     Dates: start: 20111129
  5. AMLODIPINE [Concomitant]
  6. LIPITOR [Concomitant]
  7. METOPROLOL SUCCINATE [Concomitant]

REACTIONS (1)
  - ANGINA PECTORIS [None]
